FAERS Safety Report 8944558 (Version 2)
Quarter: 2013Q1

REPORT INFORMATION
  Report Type: Spontaneous
  Country: US (occurrence: US)
  Receive Date: 20121204
  Receipt Date: 20130102
  Transmission Date: 20140127
  Serious: No
  Sender: FDA-Public Use
  Company Number: US-AMGEN-USASP2012068132

PATIENT
  Age: 40 Year
  Sex: Female
  Weight: 70.3 kg

DRUGS (2)
  1. ENBREL [Suspect]
     Indication: PSORIATIC ARTHROPATHY
     Dosage: 50 MG, BIWEEKLY
     Route: 058
     Dates: start: 200911, end: 20121009
  2. ENBREL [Suspect]
     Indication: PSORIASIS

REACTIONS (5)
  - Furuncle [Not Recovered/Not Resolved]
  - Bursitis [Recovered/Resolved]
  - Pyrexia [Not Recovered/Not Resolved]
  - Local swelling [Recovered/Resolved]
  - Pain [Recovered/Resolved]
